FAERS Safety Report 14403889 (Version 1)
Quarter: 2018Q1

REPORT INFORMATION
  Report Type: Spontaneous
  Country: GR (occurrence: GR)
  Receive Date: 20180117
  Receipt Date: 20180117
  Transmission Date: 20180509
  Serious: Yes (Other)
  Sender: FDA-Public Use
  Company Number: GR-FRESENIUS KABI-FK201800583

PATIENT
  Age: 51 Year
  Sex: Female

DRUGS (1)
  1. VANCOMYCIN (MANUFACTURER UNKNOWN) [Suspect]
     Active Substance: VANCOMYCIN
     Indication: ANTIBIOTIC PROPHYLAXIS
     Route: 050

REACTIONS (4)
  - Retinal vasculitis [Recovered/Resolved]
  - Incorrect route of drug administration [Recovered/Resolved]
  - Haemorrhagic vasculitis [Recovered/Resolved]
  - Retinal haemorrhage [Recovered/Resolved]
